FAERS Safety Report 7224215-2 (Version None)
Quarter: 2011Q1

REPORT INFORMATION
  Report Type: 
  Country: None (occurrence: None)
  Receive Date: 20110106
  Receipt Date: 20110106
  Transmission Date: 20110831
  Serious: Yes (Hospitalization)
  Sender: FDA-Public Use
  Company Number: None

PATIENT
  Sex: Male
  Weight: 48.5 kg

DRUGS (6)
  1. CYTARABINE [Suspect]
     Dosage: 70 MG
  2. DAUNORUBICIN HCL [Suspect]
     Dosage: 80 MG
  3. VINCRISTINE SULFATE [Suspect]
     Dosage: 4 MG
  4. ONCASPAR [Suspect]
     Dosage: 3900 IU
  5. PREDNISONE [Suspect]
     Dosage: 1500 MG
  6. METHOTREXATE [Suspect]
     Dosage: 15 MG

REACTIONS (26)
  - HYPERGLYCAEMIA [None]
  - DRUG EFFECT DECREASED [None]
  - RENAL FAILURE [None]
  - CLOSTRIDIUM TEST POSITIVE [None]
  - RASH ERYTHEMATOUS [None]
  - BLOOD CREATINE PHOSPHOKINASE DECREASED [None]
  - COMA SCALE ABNORMAL [None]
  - TACHYCARDIA [None]
  - BLOOD CREATINE PHOSPHOKINASE INCREASED [None]
  - LIVER FUNCTION TEST ABNORMAL [None]
  - HYPERBILIRUBINAEMIA [None]
  - HYPOTENSION [None]
  - NECROTISING FASCIITIS [None]
  - FUNGAL TEST POSITIVE [None]
  - CANDIDA TEST POSITIVE [None]
  - BACK PAIN [None]
  - BLOOD LACTIC ACID INCREASED [None]
  - VENTRICULAR FIBRILLATION [None]
  - MYOSITIS [None]
  - SEPTIC SHOCK [None]
  - MUSCLE SPASMS [None]
  - DISSEMINATED INTRAVASCULAR COAGULATION [None]
  - CARDIAC ARREST [None]
  - STAPHYLOCOCCUS TEST POSITIVE [None]
  - SOMNOLENCE [None]
  - DIALYSIS [None]
